FAERS Safety Report 4561159-9 (Version None)
Quarter: 2005Q1

REPORT INFORMATION
  Report Type: 
  Country: None (occurrence: None)
  Receive Date: 20050124
  Receipt Date: 20050113
  Transmission Date: 20050727
  Serious: Yes (Death)
  Sender: FDA-Public Use
  Company Number: 050119-0000553

PATIENT

DRUGS (1)
  1. METHAMPHETAMINE HCL [Suspect]

REACTIONS (4)
  - COMPLETED SUICIDE [None]
  - FALL [None]
  - HALLUCINATION [None]
  - OVERDOSE [None]
